FAERS Safety Report 5431609-4 (Version None)
Quarter: 2007Q3

REPORT INFORMATION
  Report Type: 
  Country: None (occurrence: None)
  Receive Date: 20070830
  Receipt Date: 20070821
  Transmission Date: 20080115
  Serious: Yes (Hospitalization)
  Sender: FDA-Public Use
  Company Number: US-ELI_LILLY_AND_COMPANY-US200708002321

PATIENT
  Age: 30 Year
  Sex: Female

DRUGS (5)
  1. CYMBALTA [Suspect]
     Dosage: UNK MG, UNK
  2. DILANTIN [Interacting]
     Dosage: UNK MG, UNK
  3. RISPERDAL [Interacting]
  4. KLONOPIN [Concomitant]
     Dosage: UNK MG, UNK
  5. RISPERIDONE [Concomitant]

REACTIONS (2)
  - DRUG INTERACTION [None]
  - PSYCHOTIC DISORDER [None]
